FAERS Safety Report 18972788 (Version 2)
Quarter: 2021Q2

REPORT INFORMATION
  Report Type: Spontaneous
  Country: US (occurrence: US)
  Receive Date: 20210305
  Receipt Date: 20210416
  Transmission Date: 20210717
  Serious: No
  Sender: FDA-Public Use
  Company Number: US-GLAXOSMITHKLINE-US2021AMR056312

PATIENT

DRUGS (4)
  1. TYLENOL MIGRAINE [ACETYLSALICYLIC ACID\CAFFEINE\PARACETAMOL] [Suspect]
     Active Substance: ACETAMINOPHEN\ASPIRIN\CAFFEINE
     Indication: HEADACHE
     Dosage: UNK
  2. IBUPROFEN. [Suspect]
     Active Substance: IBUPROFEN
     Indication: HEADACHE
     Dosage: UNK
  3. PFIZER?BIONTECH COVID?19 VACCINE [Suspect]
     Active Substance: TOZINAMERAN
     Indication: COVID-19
     Dosage: UNK
  4. SUMATRIPTAN (SUMATRIPTAN SUCCINATE) [Suspect]
     Active Substance: SUMATRIPTAN SUCCINATE
     Indication: HEADACHE
     Dosage: UNK

REACTIONS (5)
  - Drug ineffective [Unknown]
  - Headache [Recovered/Resolved]
  - Feeling cold [Recovered/Resolved]
  - Fatigue [Unknown]
  - Body temperature decreased [Recovered/Resolved]
